FAERS Safety Report 10182690 (Version 1)
Quarter: 2014Q2

REPORT INFORMATION
  Report Type: Spontaneous
  Country: US (occurrence: None)
  Receive Date: 20140519
  Receipt Date: 20140519
  Transmission Date: 20141212
  Serious: Yes (Hospitalization)
  Sender: FDA-Public Use
  Company Number: None

PATIENT
  Age: 68 Year
  Sex: Male
  Weight: 123 kg

DRUGS (1)
  1. ZOLEDRONIC ACID (ZOLENDRONATE, ZOMETA) [Suspect]

REACTIONS (8)
  - Muscular weakness [None]
  - Fall [None]
  - Metastases to spine [None]
  - Joint injury [None]
  - Asthenia [None]
  - Fatigue [None]
  - Constipation [None]
  - Urinary retention [None]
